FAERS Safety Report 7506154-2 (Version None)
Quarter: 2011Q2

REPORT INFORMATION
  Report Type: 
  Country: None (occurrence: None)
  Receive Date: 20110526
  Receipt Date: 20110523
  Transmission Date: 20111010
  Serious: No
  Sender: FDA-Public Use
  Company Number: CZ-SANOFI-AVENTIS-2011SA031794

PATIENT
  Age: 26 Year
  Sex: Female

DRUGS (2)
  1. MEDROL [Concomitant]
     Indication: RHEUMATOID ARTHRITIS
     Route: 048
  2. LEFLUNOMIDE [Suspect]
     Indication: RHEUMATOID ARTHRITIS
     Route: 048
     Dates: start: 20100701, end: 20110519

REACTIONS (1)
  - DRUG EXPOSURE DURING PREGNANCY [None]
